FAERS Safety Report 21696274 (Version 2)
Quarter: 2022Q4

REPORT INFORMATION
  Report Type: Spontaneous
  Country: US (occurrence: US)
  Receive Date: 20221207
  Receipt Date: 20221215
  Transmission Date: 20230113
  Serious: Yes (Death, Other)
  Sender: FDA-Public Use
  Company Number: US-INCYTE CORPORATION-2022IN011897

PATIENT

DRUGS (1)
  1. JAKAFI [Suspect]
     Active Substance: RUXOLITINIB
     Indication: Myelofibrosis
     Dosage: 10 MILLIGRAM, BID
     Route: 048
     Dates: start: 202103

REACTIONS (4)
  - Sepsis [Fatal]
  - Pneumonia [Fatal]
  - Infection [Fatal]
  - Product availability issue [Unknown]
